FAERS Safety Report 25731150 (Version 3)
Quarter: 2025Q4

REPORT INFORMATION
  Report Type: Spontaneous
  Country: US (occurrence: US)
  Receive Date: 20250827
  Receipt Date: 20251017
  Transmission Date: 20260118
  Serious: No
  Sender: PFIZER
  Company Number: US-PFIZER INC-202500167199

PATIENT
  Age: 29 Year
  Sex: Male

DRUGS (2)
  1. BICILLIN L-A [Suspect]
     Active Substance: PENICILLIN G BENZATHINE
     Indication: Syphilis
     Dosage: 2.4MU IM; 2.4MU IN RIGHT BUTTOCK AND 2.4MU IN LEFT BUTTOCK
     Route: 030
     Dates: start: 20240906
  2. BICILLIN L-A [Suspect]
     Active Substance: PENICILLIN G BENZATHINE
     Dosage: 2.4MU IM; 2.4MU IN RIGHT BUTTOCK AND 2.4MU IN LEFT BUTTOCK
     Route: 030
     Dates: start: 20240919

REACTIONS (1)
  - Recalled product administered [Unknown]

NARRATIVE: CASE EVENT DATE: 20240906
